FAERS Safety Report 12270854 (Version 2)
Quarter: 2016Q3

REPORT INFORMATION
  Report Type: Spontaneous
  Country: US (occurrence: US)
  Receive Date: 20160415
  Receipt Date: 20160905
  Transmission Date: 20161109
  Serious: Yes (Other)
  Sender: FDA-Public Use
  Company Number: US-TEVA-635792USA

PATIENT
  Age: 39 Year
  Sex: Female

DRUGS (3)
  1. NORTRIPTYLINE [Concomitant]
     Active Substance: NORTRIPTYLINE
  2. ZECUITY [Suspect]
     Active Substance: SUMATRIPTAN SUCCINATE
     Indication: HEADACHE
     Route: 062
     Dates: start: 201601
  3. TOPAMAX [Concomitant]
     Active Substance: TOPIRAMATE

REACTIONS (12)
  - Wrong technique in product usage process [Unknown]
  - Application site discolouration [Not Recovered/Not Resolved]
  - Wound drainage [Not Recovered/Not Resolved]
  - Application site pain [Not Recovered/Not Resolved]
  - Product leakage [Unknown]
  - Application site burn [Not Recovered/Not Resolved]
  - Application site scar [Not Recovered/Not Resolved]
  - Drug effect incomplete [Unknown]
  - Scab [Not Recovered/Not Resolved]
  - Application site discomfort [Not Recovered/Not Resolved]
  - Application site erythema [Not Recovered/Not Resolved]
  - Application site vesicles [Not Recovered/Not Resolved]

NARRATIVE: CASE EVENT DATE: 201601
